FAERS Safety Report 13844983 (Version 2)
Quarter: 2018Q3

REPORT INFORMATION
  Report Type: Spontaneous
  Country: BR (occurrence: BR)
  Receive Date: 20170808
  Receipt Date: 20180705
  Transmission Date: 20181010
  Serious: Yes (Hospitalization, Other)
  Sender: FDA-Public Use
  Company Number: BR-SA-2016SA187751

PATIENT
  Age: 32 Year
  Sex: Female
  Weight: 110.2 kg

DRUGS (7)
  1. FOLIC ACID. [Concomitant]
     Active Substance: FOLIC ACID
     Indication: VITAMIN SUPPLEMENTATION
     Dosage: 1 DF,QD
     Route: 048
  2. SYNTHROID [Concomitant]
     Active Substance: LEVOTHYROXINE SODIUM
     Indication: HORMONE LEVEL ABNORMAL
     Dosage: 1 DF,QD
     Route: 048
     Dates: start: 2015
  3. CLEXANE [Suspect]
     Active Substance: ENOXAPARIN SODIUM
     Indication: THROMBOSIS
     Dosage: 40 MG,UNK
     Route: 065
     Dates: start: 20160924
  4. CLEXANE [Suspect]
     Active Substance: ENOXAPARIN SODIUM
     Dosage: 60 MG,UNK
     Route: 065
  5. CLEXANE [Suspect]
     Active Substance: ENOXAPARIN SODIUM
     Dosage: 80 MG,UNK
     Route: 065
     Dates: end: 20170329
  6. ACETYLSALICYLIC ACID [Concomitant]
     Active Substance: ASPIRIN
     Indication: THROMBOSIS
     Dosage: 1 DF,QD
     Route: 048
  7. ERGOCALCIFEROL. [Concomitant]
     Active Substance: ERGOCALCIFEROL
     Indication: VITAMIN SUPPLEMENTATION
     Dosage: 2 DF,QD
     Route: 048

REACTIONS (4)
  - Caesarean section [Unknown]
  - Placental disorder [Unknown]
  - Exposure during pregnancy [Unknown]
  - Hospitalisation [Unknown]

NARRATIVE: CASE EVENT DATE: 20170330
